FAERS Safety Report 4658723-5 (Version None)
Quarter: 2005Q2

REPORT INFORMATION
  Report Type: 
  Country: None (occurrence: None)
  Receive Date: 20050511
  Receipt Date: 20050427
  Transmission Date: 20051028
  Serious: Yes (Hospitalization)
  Sender: FDA-Public Use
  Company Number: FR-JNJFOC-20050401446

PATIENT
  Sex: Female
  Weight: 55 kg

DRUGS (6)
  1. REMICADE [Suspect]
     Indication: RHEUMATOID ARTHRITIS
     Route: 042
  2. IMUREL [Concomitant]
     Indication: RHEUMATOID ARTHRITIS
  3. PREDNISONE [Concomitant]
     Indication: RHEUMATOID ARTHRITIS
  4. VOLTAREN [Concomitant]
     Indication: RHEUMATOID ARTHRITIS
  5. OMEPRAZOLE [Concomitant]
  6. PROPRANOLOL HYDROCHLORIDE [Concomitant]

REACTIONS (5)
  - FELTY'S SYNDROME [None]
  - HEPATITIS C [None]
  - PORTAL HYPERTENSION [None]
  - SPLENOMEGALY [None]
  - VARICES OESOPHAGEAL [None]
